FAERS Safety Report 5861478-X (Version None)
Quarter: 2008Q3

REPORT INFORMATION
  Report Type: 
  Country: None (occurrence: None)
  Receive Date: 20080827
  Receipt Date: 20080521
  Transmission Date: 20090109
  Serious: No
  Sender: FDA-Public Use
  Company Number: US-ABBOTT-08P-163-0452736-00

PATIENT
  Sex: Female
  Weight: 74.91 kg

DRUGS (8)
  1. COATED PDS [Suspect]
     Indication: BLOOD CHOLESTEROL INCREASED
     Dosage: ONE HALF TABLET, DAILY
     Route: 048
     Dates: start: 20080514, end: 20080520
  2. LEVOTHYROXINE SODIUM [Concomitant]
     Indication: HYPOTHYROIDISM
     Dosage: DAILY
     Route: 048
     Dates: start: 19930101
  3. CYTAMIL [Concomitant]
     Indication: HYPOTHYROIDISM
     Dosage: DAILY
     Route: 048
  4. RABEPRAZOLE SODIUM [Concomitant]
     Indication: GASTROOESOPHAGEAL REFLUX DISEASE
     Dosage: DAILY
     Route: 048
  5. GLICLAZIDE [Concomitant]
     Indication: MENIERE'S DISEASE
     Dosage: 37/25, DAILY
     Route: 048
  6. CELECOXIB [Concomitant]
     Indication: PAIN
     Route: 048
  7. SIMVASTATIN [Concomitant]
     Indication: BLOOD CHOLESTEROL INCREASED
     Route: 048
  8. EZETIMIBE [Concomitant]
     Indication: BLOOD CHOLESTEROL INCREASED
     Dosage: DAILY
     Route: 048
     Dates: end: 20080514

REACTIONS (3)
  - FEELING ABNORMAL [None]
  - FLUSHING [None]
  - RASH GENERALISED [None]
